FAERS Safety Report 23750309 (Version 1)
Quarter: 2024Q2

REPORT INFORMATION
  Report Type: Spontaneous
  Country: US (occurrence: US)
  Receive Date: 20240417
  Receipt Date: 20240417
  Transmission Date: 20240716
  Serious: Yes (Other)
  Sender: FDA-Public Use
  Company Number: US-ENDO PHARMACEUTICALS INC-2024-001745

PATIENT
  Sex: Female

DRUGS (6)
  1. SUPPRELIN LA [Suspect]
     Active Substance: HISTRELIN ACETATE
     Indication: Precocious puberty
     Dosage: UNK UNKNOWN, UNKNOWN
     Route: 058
  2. SUPPRELIN LA [Suspect]
     Active Substance: HISTRELIN ACETATE
     Indication: Precocious puberty
     Dosage: UNK UNKNOWN, UNKNOWN
     Route: 058
  3. SUPPRELIN LA [Suspect]
     Active Substance: HISTRELIN ACETATE
     Indication: Precocious puberty
     Dosage: UNK UNKNOWN, UNKNOWN
     Route: 058
  4. SUPPRELIN LA [Suspect]
     Active Substance: HISTRELIN ACETATE
     Dosage: UNK UNKNOWN, UNKNOWN (SECOND IMPLANT INSERTED AT AGE OF 10 YEARS)
     Route: 058
  5. SUPPRELIN LA [Suspect]
     Active Substance: HISTRELIN ACETATE
     Dosage: UNK UNKNOWN, UNKNOWN (SECOND IMPLANT INSERTED AT AGE OF 10 YEARS)
     Route: 058
  6. SUPPRELIN LA [Suspect]
     Active Substance: HISTRELIN ACETATE
     Dosage: UNK UNKNOWN, UNKNOWN (SECOND IMPLANT INSERTED AT AGE OF 10 YEARS)
     Route: 058

REACTIONS (5)
  - Type 2 diabetes mellitus [Not Recovered/Not Resolved]
  - Overweight [Unknown]
  - Weight decreased [Not Recovered/Not Resolved]
  - Menstruation delayed [Not Recovered/Not Resolved]
  - Incorrect product administration duration [Unknown]
